FAERS Safety Report 15729976 (Version 10)
Quarter: 2020Q3

REPORT INFORMATION
  Report Type: Report from Study
  Country: NL (occurrence: NL)
  Receive Date: 20181217
  Receipt Date: 20191115
  Transmission Date: 20201105
  Serious: Yes (Death, Life-Threatening, Hospitalization)
  Sender: FDA-Public Use
  Company Number: NL-JNJFOC-20181216588

PATIENT
  Sex: Male
  Weight: 108 kg

DRUGS (4)
  1. BLINDED VENETOCLAX [Suspect]
     Active Substance: VENETOCLAX
     Indication: MANTLE CELL LYMPHOMA
     Route: 065
     Dates: start: 20181120, end: 20181210
  2. BUMETANIDE. [Concomitant]
     Active Substance: BUMETANIDE
     Indication: DYSPNOEA
     Route: 048
     Dates: start: 20181204
  3. IBRUTINIB [Suspect]
     Active Substance: IBRUTINIB
     Indication: MANTLE CELL LYMPHOMA
     Route: 048
     Dates: start: 20181120, end: 20181210
  4. VERAPAMIL [Concomitant]
     Active Substance: VERAPAMIL HYDROCHLORIDE

REACTIONS (2)
  - Subarachnoid haemorrhage [Fatal]
  - Atrial flutter [Recovered/Resolved]

NARRATIVE: CASE EVENT DATE: 20181209
